FAERS Safety Report 8510777-1 (Version None)
Quarter: 2012Q3

REPORT INFORMATION
  Report Type: 
  Country: None (occurrence: None)
  Receive Date: 20120716
  Receipt Date: 20120712
  Transmission Date: 20120928
  Serious: No
  Sender: FDA-Public Use
  Company Number: US-PFIZER INC-2012168958

PATIENT
  Sex: Male
  Weight: 106.58 kg

DRUGS (1)
  1. XANAX [Suspect]
     Indication: ANXIETY
     Dosage: 0.25 MG, 3X/DAY
     Route: 048
     Dates: start: 20080701, end: 20120501

REACTIONS (1)
  - ANXIETY [None]
